FAERS Safety Report 14480533 (Version 2)
Quarter: 2018Q1

REPORT INFORMATION
  Report Type: Spontaneous
  Country: US (occurrence: US)
  Receive Date: 20180202
  Receipt Date: 20180308
  Transmission Date: 20180509
  Serious: No
  Sender: FDA-Public Use
  Company Number: US-PFIZER INC-2018047586

PATIENT
  Age: 53 Year
  Sex: Female
  Weight: 101.15 kg

DRUGS (1)
  1. LYRICA [Suspect]
     Active Substance: PREGABALIN
     Indication: BACK PAIN
     Dosage: 75 MG, 1X/DAY
     Dates: start: 201711

REACTIONS (2)
  - Wrong dose [Unknown]
  - Back pain [Unknown]

NARRATIVE: CASE EVENT DATE: 201711
